FAERS Safety Report 5985738-7 (Version None)
Quarter: 2008Q4

REPORT INFORMATION
  Report Type: 
  Country: None (occurrence: None)
  Receive Date: 20081208
  Receipt Date: 20080331
  Transmission Date: 20090506
  Serious: No
  Sender: FDA-Public Use
  Company Number: US-AMGEN-KDL271141

PATIENT
  Sex: Female
  Weight: 79.5 kg

DRUGS (3)
  1. ENBREL [Suspect]
     Indication: RHEUMATOID ARTHRITIS
     Route: 058
     Dates: start: 20080222
  2. METHOTREXATE [Concomitant]
     Dates: start: 20080104
  3. INSULIN [Concomitant]
     Dates: start: 19940101

REACTIONS (7)
  - BACK PAIN [None]
  - BODY TEMPERATURE INCREASED [None]
  - CHEST PAIN [None]
  - DIZZINESS [None]
  - FATIGUE [None]
  - MUSCULOSKELETAL PAIN [None]
  - OROPHARYNGEAL PAIN [None]
